FAERS Safety Report 25031306 (Version 1)
Quarter: 2025Q1

REPORT INFORMATION
  Report Type: Spontaneous
  Country: FR (occurrence: FR)
  Receive Date: 20250303
  Receipt Date: 20250303
  Transmission Date: 20250408
  Serious: Yes (Other)
  Sender: BAYER HEALTHCARE PHARMACEUTICALS INC.
  Company Number: None

PATIENT
  Age: 74 Year
  Sex: Female

DRUGS (4)
  1. CIPROFLOXACIN [Suspect]
     Active Substance: CIPROFLOXACIN
     Indication: Urinary tract infection
     Dosage: 2 DF, QD
     Route: 048
     Dates: start: 20241219, end: 20241225
  2. AMOXICILLIN [Suspect]
     Active Substance: AMOXICILLIN
     Indication: Product used for unknown indication
     Dosage: 3 G, QD
     Route: 048
     Dates: start: 20241205, end: 20241210
  3. BCG-MEDAC [Suspect]
     Active Substance: BACILLUS CALMETTE-GUERIN SUBSTRAIN RIVM LIVE ANTIGEN
     Indication: Bladder cancer
     Route: 043
     Dates: start: 20241211, end: 20241211
  4. FOSFOMYCIN TROMETHAMINE [Suspect]
     Active Substance: FOSFOMYCIN TROMETHAMINE
     Indication: Urinary tract infection
     Route: 048
     Dates: start: 20241218, end: 20241218

REACTIONS (2)
  - Skin exfoliation [Recovering/Resolving]
  - Erythema [Recovering/Resolving]

NARRATIVE: CASE EVENT DATE: 20241220
